FAERS Safety Report 12877723 (Version 2)
Quarter: 2016Q4

REPORT INFORMATION
  Report Type: Spontaneous
  Country: US (occurrence: US)
  Receive Date: 20161024
  Receipt Date: 20161025
  Transmission Date: 20170207
  Serious: No
  Sender: FDA-Public Use
  Company Number: US-PFIZER INC-2016493828

PATIENT
  Age: 76 Year
  Sex: Male
  Weight: 109 kg

DRUGS (8)
  1. LYRICA [Suspect]
     Active Substance: PREGABALIN
     Indication: NEUROPATHY PERIPHERAL
     Dosage: 200 MG, 3X/DAY
  2. XANAX [Concomitant]
     Active Substance: ALPRAZOLAM
     Dosage: 0.25 MG, 1X/DAY, AT BED TIME
  3. LYRICA [Suspect]
     Active Substance: PREGABALIN
     Dosage: 200 MG, 4X/DAY
     Dates: start: 20161015
  4. PREGABALIN. [Suspect]
     Active Substance: PREGABALIN
  5. CYMBALTA [Concomitant]
     Active Substance: DULOXETINE HYDROCHLORIDE
  6. DUTASTERIDE. [Concomitant]
     Active Substance: DUTASTERIDE
  7. AMITRIPTYLINE [Concomitant]
     Active Substance: AMITRIPTYLINE
     Dosage: 25 MG, 1X/DAY
  8. ATARAX [Concomitant]
     Active Substance: HYDROXYZINE\HYDROXYZINE HYDROCHLORIDE

REACTIONS (2)
  - Overdose [Unknown]
  - Drug effect incomplete [Unknown]

NARRATIVE: CASE EVENT DATE: 20161015
